FAERS Safety Report 5955594-1 (Version None)
Quarter: 2008Q4

REPORT INFORMATION
  Report Type: 
  Country: None (occurrence: None)
  Receive Date: 20081117
  Receipt Date: 20081112
  Transmission Date: 20090506
  Serious: Yes (Other)
  Sender: FDA-Public Use
  Company Number: ZA-ABBOTT-08P-143-0487291-00

PATIENT
  Sex: Male

DRUGS (2)
  1. ALUVIA TABLETS 200MG/50MG [Suspect]
     Indication: PROPHYLAXIS AGAINST HIV INFECTION
     Dosage: 200MG/50MG, TWO TABS, TWICE DAILY
     Route: 048
     Dates: start: 20081028, end: 20081107
  2. EMTRICITABINE [Suspect]
     Indication: PROPHYLAXIS AGAINST HIV INFECTION
     Dosage: 200/300MG, 1 TAB DAILY
     Route: 048
     Dates: start: 20081028

REACTIONS (8)
  - BONE PAIN [None]
  - LOSS OF CONSCIOUSNESS [None]
  - MYALGIA [None]
  - NAUSEA [None]
  - OEDEMA MOUTH [None]
  - RASH GENERALISED [None]
  - VERTIGO [None]
  - VOMITING [None]
